FAERS Safety Report 7021102-X (Version None)
Quarter: 2010Q3

REPORT INFORMATION
  Report Type: 
  Country: None (occurrence: None)
  Receive Date: 20100929
  Receipt Date: 20100912
  Transmission Date: 20110219
  Serious: Yes (Hospitalization)
  Sender: FDA-Public Use
  Company Number: PHHY2010US60524

PATIENT
  Sex: Female

DRUGS (2)
  1. VALTURNA [Suspect]
     Dosage: 150 MG PER DAY
  2. VALTURNA [Suspect]
     Dosage: 300 MG PER DAY

REACTIONS (4)
  - BLOOD PRESSURE INCREASED [None]
  - CHEST DISCOMFORT [None]
  - CHEST PAIN [None]
  - THROAT TIGHTNESS [None]
